FAERS Safety Report 25841954 (Version 1)
Quarter: 2025Q3

REPORT INFORMATION
  Report Type: Spontaneous
  Country: GB (occurrence: GB)
  Receive Date: 20250924
  Receipt Date: 20250924
  Transmission Date: 20251020
  Serious: Yes (Hospitalization)
  Sender: VERTEX
  Company Number: GB-VERTEX PHARMACEUTICALS-2025-015400

PATIENT
  Sex: Female

DRUGS (20)
  1. KALYDECO [Suspect]
     Active Substance: IVACAFTOR
     Indication: Cystic fibrosis
     Dosage: 01 PACKET GRANULES (75MG IVACAFTOR), BID
     Route: 048
     Dates: start: 2024, end: 202509
  2. DEVICE\XYLITOL [Concomitant]
     Active Substance: DEVICE\XYLITOL
  3. CETIRIZINE HYDROCHLORIDE [Concomitant]
     Active Substance: CETIRIZINE HYDROCHLORIDE
  4. CHOLECALCIFEROL [Concomitant]
     Active Substance: CHOLECALCIFEROL
  5. GABAPENTIN [Concomitant]
     Active Substance: GABAPENTIN
  6. IMIPRAMINE HYDROCHLORIDE [Concomitant]
     Active Substance: IMIPRAMINE HYDROCHLORIDE
  7. LANSOPRAZOLE [Concomitant]
     Active Substance: LANSOPRAZOLE
  8. LOPERAMIDE HYDROCHLORIDE [Concomitant]
     Active Substance: LOPERAMIDE HYDROCHLORIDE
  9. LANTUS [Concomitant]
     Active Substance: INSULIN GLARGINE
  10. NOVORAPID [Concomitant]
     Active Substance: INSULIN ASPART
  11. ACETAMINOPHEN [Concomitant]
     Active Substance: ACETAMINOPHEN
  12. RAMIPRIL [Concomitant]
     Active Substance: RAMIPRIL
  13. ALBUTEROL [Concomitant]
     Active Substance: ALBUTEROL
  14. ALBUTEROL [Concomitant]
     Active Substance: ALBUTEROL
  15. SERTRALINE HYDROCHLORIDE [Concomitant]
     Active Substance: SERTRALINE HYDROCHLORIDE
  16. SIMVASTATIN [Concomitant]
     Active Substance: SIMVASTATIN
  17. SOLIFENACIN [Concomitant]
     Active Substance: SOLIFENACIN
  18. BECLOMETHASONE DIPROPIONATE\FORMOTEROL FUMARATE\GLYCOPYRROLATE [Concomitant]
     Active Substance: BECLOMETHASONE DIPROPIONATE\FORMOTEROL FUMARATE\GLYCOPYRROLATE
  19. URSODIOL [Concomitant]
     Active Substance: URSODIOL
  20. CREON [Concomitant]
     Active Substance: PANCRELIPASE AMYLASE\PANCRELIPASE LIPASE\PANCRELIPASE PROTEASE

REACTIONS (3)
  - Liver disorder [Unknown]
  - Pancreatolithiasis [Unknown]
  - Blood bilirubin increased [Unknown]
